FAERS Safety Report 9664975 (Version 3)
Quarter: 2013Q4

REPORT INFORMATION
  Report Type: Spontaneous
  Country: US (occurrence: US)
  Receive Date: 20131101
  Receipt Date: 20131114
  Transmission Date: 20140711
  Serious: Yes (Death, Other)
  Sender: FDA-Public Use
  Company Number: US-GILEAD-2013-0086893

PATIENT
  Sex: Female

DRUGS (3)
  1. LETAIRIS [Suspect]
     Indication: PULMONARY HYPERTENSION
     Dosage: 10 MG, QID
     Route: 048
     Dates: start: 201302
  2. LETAIRIS [Suspect]
     Indication: RHEUMATOID LUNG
  3. REVATIO [Concomitant]

REACTIONS (1)
  - Pulmonary arterial hypertension [Fatal]
